FAERS Safety Report 10009510 (Version 1)
Quarter: 2014Q1

REPORT INFORMATION
  Report Type: Spontaneous
  Country: US (occurrence: US)
  Receive Date: 20140312
  Receipt Date: 20140312
  Transmission Date: 20141002
  Serious: No
  Sender: FDA-Public Use
  Company Number: US-INCYTE CORPORATION-2012IN001758

PATIENT
  Age: 62 Year
  Sex: Male

DRUGS (3)
  1. JAKAFI [Suspect]
     Indication: MYELOFIBROSIS
     Dosage: 5 MG, BID
     Route: 048
     Dates: start: 201204, end: 201206
  2. JAKAFI [Suspect]
     Dosage: 10 MG, BID
     Route: 048
     Dates: start: 201206
  3. METOPROLOL [Concomitant]
     Dosage: UNK

REACTIONS (5)
  - Vision blurred [Unknown]
  - Bradyphrenia [Unknown]
  - Flatulence [Unknown]
  - Diarrhoea [Unknown]
  - Dizziness [Unknown]
